FAERS Safety Report 11759389 (Version 1)
Quarter: 2015Q4

REPORT INFORMATION
  Report Type: Spontaneous
  Country: US (occurrence: US)
  Receive Date: 20151120
  Receipt Date: 20151120
  Transmission Date: 20160304
  Serious: No
  Sender: FDA-Public Use
  Company Number: US-JNJFOC-20151003575

PATIENT
  Age: 68 Year
  Sex: Female
  Weight: 58.06 kg

DRUGS (3)
  1. WOMENS ROGAINE UNSCENTED [Suspect]
     Active Substance: MINOXIDIL
     Route: 061
  2. WOMENS ROGAINE UNSCENTED [Suspect]
     Active Substance: MINOXIDIL
     Indication: ALOPECIA
     Dosage: JUST A LITTLE BIT, 1 TABLESPOON, EVERY DAY, THEN 2 TIMES IN A WEEK
     Route: 061
  3. VITAMINS [Concomitant]
     Active Substance: VITAMINS
     Indication: PRODUCT USED FOR UNKNOWN INDICATION
     Route: 065

REACTIONS (3)
  - Product quality issue [Unknown]
  - Headache [Recovered/Resolved]
  - Drug ineffective [Unknown]
